FAERS Safety Report 11879117 (Version 1)
Quarter: 2015Q4

REPORT INFORMATION
  Report Type: Spontaneous
  Country: GB (occurrence: GB)
  Receive Date: 20151230
  Receipt Date: 20151230
  Transmission Date: 20160305
  Serious: Yes (Hospitalization)
  Sender: FDA-Public Use
  Company Number: GB-TEVA-620714ACC

PATIENT
  Age: 80 Year
  Sex: Male

DRUGS (10)
  1. LOSARTAN. [Concomitant]
     Active Substance: LOSARTAN
  2. SITAGLIPTIN [Concomitant]
     Active Substance: SITAGLIPTIN
  3. METFORMIN [Suspect]
     Active Substance: METFORMIN HYDROCHLORIDE
     Dosage: 12 X 500MG TABLETS
     Route: 048
  4. ASPIRIN. [Concomitant]
     Active Substance: ASPIRIN
  5. ATENOLOL. [Concomitant]
     Active Substance: ATENOLOL
  6. ATORVASTATIN [Concomitant]
     Active Substance: ATORVASTATIN
  7. GABAPENTIN. [Concomitant]
     Active Substance: GABAPENTIN
  8. GLIPIZIDE. [Concomitant]
     Active Substance: GLIPIZIDE
  9. HYDROXOCOBALAMIN [Concomitant]
     Active Substance: HYDROXOCOBALAMIN
  10. METFORMIN [Suspect]
     Active Substance: METFORMIN HYDROCHLORIDE
     Dosage: 2 GRAM DAILY;
     Route: 048

REACTIONS (3)
  - Metabolic acidosis [Recovered/Resolved]
  - Intentional overdose [Unknown]
  - Confusional state [Unknown]

NARRATIVE: CASE EVENT DATE: 20151208
